FAERS Safety Report 6011140-8 (Version None)
Quarter: 2008Q4

REPORT INFORMATION
  Report Type: 
  Country: None (occurrence: None)
  Receive Date: 20081217
  Receipt Date: 20081217
  Transmission Date: 20090506
  Serious: Yes (Other)
  Sender: FDA-Public Use
  Company Number: None

PATIENT
  Sex: Female
  Weight: 59.55 kg

DRUGS (8)
  1. PRAVACHOL [Suspect]
     Dosage: 20MG TABLET 20 MG QD ORAL
     Route: 048
     Dates: start: 20081021, end: 20081216
  2. ASPIRIN [Concomitant]
  3. CALTRATE 600 + D [Concomitant]
  4. FEMARA [Concomitant]
  5. FOSAMAX [Concomitant]
  6. MULTIVITIMIN THERAPEUTIC [Concomitant]
  7. TOCOPHEROL-DL-ALPHA [Concomitant]
  8. ASCORBIC ACID [Concomitant]

REACTIONS (1)
  - MYOSITIS [None]
